FAERS Safety Report 5424849-1 (Version None)
Quarter: 2007Q3

REPORT INFORMATION
  Report Type: 
  Country: None (occurrence: None)
  Receive Date: 20070822
  Receipt Date: 20070809
  Transmission Date: 20080115
  Serious: Yes (Hospitalization, Other)
  Sender: FDA-Public Use
  Company Number: 2007BI015097

PATIENT
  Age: 51 Year
  Sex: Female
  Weight: 56.246 kg

DRUGS (1)
  1. NATALIZUMAB [Suspect]
     Indication: MULTIPLE SCLEROSIS
     Dosage: 300 MG; QM; IV
     Route: 042
     Dates: start: 20061221

REACTIONS (6)
  - ABSCESS [None]
  - CONVULSION [None]
  - DEEP VEIN THROMBOSIS [None]
  - NEUROGENIC BLADDER [None]
  - STAPHYLOCOCCAL INFECTION [None]
  - THROMBOSIS [None]
